FAERS Safety Report 24703770 (Version 1)
Quarter: 2024Q4

REPORT INFORMATION
  Report Type: Spontaneous
  Country: US (occurrence: US)
  Receive Date: 20241206
  Receipt Date: 20241206
  Transmission Date: 20250115
  Serious: No
  Sender: AUROBINDO
  Company Number: US-AUROBINDO-AUR-APL-2024-011063

PATIENT
  Age: 77 Year
  Sex: Male
  Weight: 67.131 kg

DRUGS (4)
  1. MIRTAZAPINE [Suspect]
     Active Substance: MIRTAZAPINE
     Indication: Insomnia
     Dosage: 1 DOSAGE FORM, DAILY
     Route: 048
  2. MELATONIN [Concomitant]
     Active Substance: MELATONIN
     Indication: Product used for unknown indication
     Dosage: 1 DOSAGE FORM, DAILY (BEFORE  SLEEPING)
     Route: 065
  3. TYLENOL [Concomitant]
     Active Substance: ACETAMINOPHEN
     Indication: Back pain
     Dosage: UNK   (AT NIGHT, HE  TAKES 2 OF  THEM AND IN  THE MORNING.  SO IT^S A TOTAL  OF 1950 MG A  DAY.)
     Route: 065
  4. TYLENOL [Concomitant]
     Active Substance: ACETAMINOPHEN
     Indication: Arthralgia

REACTIONS (2)
  - Somnolence [Unknown]
  - Fatigue [Unknown]
